FAERS Safety Report 9527512 (Version 1)
Quarter: 2013Q3

REPORT INFORMATION
  Report Type: Spontaneous
  Country: US (occurrence: None)
  Receive Date: 20130913
  Receipt Date: 20130913
  Transmission Date: 20140515
  Serious: No
  Sender: FDA-Public Use
  Company Number: None

PATIENT
  Age: 40 Year
  Sex: Female
  Weight: 172.37 kg

DRUGS (7)
  1. BUPROPION XL 150MG MYLAN [Suspect]
     Indication: DEPRESSION
     Dosage: 150MG 3 PILLS 1X DAILY BY MOUTH?
     Route: 048
     Dates: start: 20130729, end: 20130906
  2. LISINOPRIL [Concomitant]
  3. LABETALOL [Concomitant]
  4. SYNTHROID [Concomitant]
  5. BUPROPION [Concomitant]
  6. CPAP MACHINE [Concomitant]
  7. VITAMIN D [Concomitant]

REACTIONS (4)
  - Depression [None]
  - Asthenia [None]
  - Depressed mood [None]
  - Drug effect decreased [None]
